FAERS Safety Report 9436790 (Version 1)
Quarter: 2013Q3

REPORT INFORMATION
  Report Type: Spontaneous
  Country: US (occurrence: US)
  Receive Date: 20130802
  Receipt Date: 20130802
  Transmission Date: 20140515
  Serious: No
  Sender: FDA-Public Use
  Company Number: US-JNJFOC-20130700671

PATIENT
  Sex: Male

DRUGS (2)
  1. INVEGA SUSTENNA [Suspect]
     Indication: POST CONCUSSION SYNDROME
     Route: 030
  2. INVEGA SUSTENNA [Suspect]
     Indication: POST CONCUSSION SYNDROME
     Route: 030

REACTIONS (11)
  - Impaired work ability [Unknown]
  - Immobile [Unknown]
  - Illusion [Unknown]
  - Adverse event [Unknown]
  - Abnormal weight gain [Unknown]
  - Fatigue [Unknown]
  - Muscle fatigue [Unknown]
  - Fear [Unknown]
  - Off label use [Unknown]
  - Increased appetite [Unknown]
  - Sensation of heaviness [Unknown]
